FAERS Safety Report 4318435-4 (Version None)
Quarter: 2004Q1

REPORT INFORMATION
  Report Type: 
  Country: None (occurrence: None)
  Receive Date: 20040315
  Receipt Date: 20040209
  Transmission Date: 20041129
  Serious: Yes (Other)
  Sender: FDA-Public Use
  Company Number: 2004016093

PATIENT
  Age: 66 Year
  Sex: Male
  Weight: 79.5 kg

DRUGS (3)
  1. DOXAZOSIN MESYLATE [Suspect]
     Indication: HYPERTENSION
     Dosage: 4 MG (DAILY)
  2. BENDROFLUAZIDE (BENDROFLUMETHIAZINE) [Suspect]
     Indication: HYPERTENSION
     Dosage: 2.5 MG (DAILY)
  3. ATENOLOL [Suspect]
     Indication: HYPERTENSION
     Dosage: 50 MG (DAILY)

REACTIONS (3)
  - HEPATIC CYST [None]
  - HEPATIC FIBROSIS [None]
  - HEPATITIS [None]
